FAERS Safety Report 10994823 (Version 1)
Quarter: 2015Q2

REPORT INFORMATION
  Report Type: Spontaneous
  Country: US (occurrence: None)
  Receive Date: 20150406
  Receipt Date: 20150406
  Transmission Date: 20150821
  Serious: Yes (Other)
  Sender: FDA-Public Use
  Company Number: None

PATIENT
  Age: 56 Year
  Sex: Female
  Weight: 77.11 kg

DRUGS (3)
  1. CIPRO [Suspect]
     Active Substance: CIPROFLOXACIN HYDROCHLORIDE
     Indication: URINARY TRACT INFECTION
  2. PROBIOTICS [Concomitant]
     Active Substance: PROBIOTICS NOS
  3. THYROID MEDICATION [Concomitant]
     Active Substance: UNSPECIFIED INGREDIENT

REACTIONS (13)
  - Tendon pain [None]
  - Tooth loss [None]
  - Fatigue [None]
  - Dementia [None]
  - Malaise [None]
  - Stomatitis [None]
  - Urinary tract infection [None]
  - Memory impairment [None]
  - Blood glucose increased [None]
  - Adverse drug reaction [None]
  - Myalgia [None]
  - Arthralgia [None]
  - Photophobia [None]
